FAERS Safety Report 8077444-2 (Version None)
Quarter: 2012Q1

REPORT INFORMATION
  Report Type: 
  Country: None (occurrence: None)
  Receive Date: 20120127
  Receipt Date: 20120124
  Transmission Date: 20120608
  Serious: Yes (Death, Life-Threatening)
  Sender: FDA-Public Use
  Company Number: JP-EISAI INC-E2090-01951-SPO-JP

PATIENT
  Sex: Male

DRUGS (7)
  1. SIMVASTATIN [Concomitant]
     Dates: end: 20120107
  2. CARVEDILOL [Concomitant]
     Dates: end: 20120107
  3. SENNOSIDE [Concomitant]
     Dates: end: 20120107
  4. CEFOTIAM HYDROCHLORIDE [Interacting]
     Route: 041
     Dates: start: 20120109
  5. ZONISAMIDE [Suspect]
     Indication: PARKINSONISM
     Route: 048
     Dates: start: 20111203, end: 20120107
  6. ENALAPRIL MALEATE [Concomitant]
  7. BULKOSE [Concomitant]
     Dates: end: 20120107

REACTIONS (1)
  - WHITE BLOOD CELL COUNT DECREASED [None]
